FAERS Safety Report 6745412-6 (Version None)
Quarter: 2010Q2

REPORT INFORMATION
  Report Type: 
  Country: None (occurrence: None)
  Receive Date: 20100528
  Receipt Date: 20100514
  Transmission Date: 20101027
  Serious: Yes (Hospitalization, Other)
  Sender: FDA-Public Use
  Company Number: US-BAYER-201010001NA

PATIENT
  Age: 31 Year
  Sex: Female

DRUGS (3)
  1. YAZ [Suspect]
     Indication: ORAL CONTRACEPTION
     Route: 048
     Dates: start: 20060301, end: 20091001
  2. YAZ [Suspect]
     Route: 048
     Dates: start: 20060301, end: 20091001
  3. YASMIN [Suspect]
     Indication: DRUG USE FOR UNKNOWN INDICATION

REACTIONS (3)
  - COAGULOPATHY [None]
  - INJURY [None]
  - PAIN [None]
